FAERS Safety Report 7471064-6 (Version None)
Quarter: 2011Q2

REPORT INFORMATION
  Report Type: 
  Country: None (occurrence: None)
  Receive Date: 20110510
  Receipt Date: 20110427
  Transmission Date: 20111010
  Serious: Yes (Other)
  Sender: FDA-Public Use
  Company Number: CA-JNJFOC-20110412323

PATIENT
  Sex: Female
  Weight: 97.07 kg

DRUGS (12)
  1. REACTINE [Concomitant]
     Indication: PRODUCT USED FOR UNKNOWN INDICATION
  2. CALCIUM AND VITAMIN D [Concomitant]
     Indication: NUTRITIONAL SUPPORT
  3. NASONEX [Concomitant]
     Indication: MULTIPLE ALLERGIES
     Route: 045
  4. DICETEL [Concomitant]
     Indication: GASTROOESOPHAGEAL REFLUX DISEASE
  5. BRICANYL [Concomitant]
     Indication: ASTHMA
  6. REMICADE [Suspect]
     Indication: RHEUMATOID ARTHRITIS
     Route: 042
  7. CELLCEPT [Concomitant]
     Indication: RHEUMATOID ARTHRITIS
  8. PREMARIN [Concomitant]
     Indication: HORMONE REPLACEMENT THERAPY
  9. CELEBREX [Concomitant]
     Indication: RHEUMATOID ARTHRITIS
  10. FLOVENT [Concomitant]
     Indication: ASTHMA
     Dosage: 250 MG 2 PUFFS BID AS NEEDED
  11. PANTOLOC [Concomitant]
     Indication: GASTROOESOPHAGEAL REFLUX DISEASE
  12. PRED FORTE [Concomitant]
     Indication: EYE INFLAMMATION

REACTIONS (1)
  - CATARACT [None]
